FAERS Safety Report 12163055 (Version 1)
Quarter: 2016Q1

REPORT INFORMATION
  Report Type: Spontaneous
  Country: US (occurrence: None)
  Receive Date: 20160308
  Receipt Date: 20160308
  Transmission Date: 20160526
  Serious: Yes (Life-Threatening, Hospitalization)
  Sender: FDA-Public Use
  Company Number: None

PATIENT
  Age: 53 Year
  Sex: Male
  Weight: 133 kg

DRUGS (1)
  1. BIVALIRUDIN. [Suspect]
     Active Substance: BIVALIRUDIN
     Indication: CATHETERISATION CARDIAC

REACTIONS (4)
  - Thrombosis [None]
  - Haemodynamic instability [None]
  - Haemorrhage [None]
  - Cardio-respiratory arrest [None]

NARRATIVE: CASE EVENT DATE: 20160302
